FAERS Safety Report 6501927-7 (Version None)
Quarter: 2009Q4

REPORT INFORMATION
  Report Type: 
  Country: None (occurrence: None)
  Receive Date: 20091216
  Receipt Date: 20091201
  Transmission Date: 20100525
  Serious: Yes (Other)
  Sender: FDA-Public Use
  Company Number: CA-GENENTECH-295461

PATIENT
  Sex: Female

DRUGS (3)
  1. RITUXIMAB [Suspect]
     Indication: NON-HODGKIN'S LYMPHOMA
     Dosage: 600 MG, Q3M
     Route: 042
     Dates: start: 20090506
  2. DILANTIN [Concomitant]
     Indication: DRUG USE FOR UNKNOWN INDICATION
     Dosage: UNK
  3. KEPPRA [Concomitant]
     Indication: CONVULSION
     Dosage: INDICATION REPORTED AS ANTI-SEIZURE

REACTIONS (5)
  - CATARACT [None]
  - PERIODONTAL DISEASE [None]
  - PRURITUS [None]
  - RECTAL DISCHARGE [None]
  - STRESS URINARY INCONTINENCE [None]
